FAERS Safety Report 6810335-0 (Version None)
Quarter: 2010Q2

REPORT INFORMATION
  Report Type: 
  Country: None (occurrence: None)
  Receive Date: 20100630
  Receipt Date: 20100618
  Transmission Date: 20101027
  Serious: Yes (Hospitalization)
  Sender: FDA-Public Use
  Company Number: PHHY2010IT27584

PATIENT
  Sex: Female

DRUGS (3)
  1. TOLEP [Suspect]
     Indication: EPILEPSY
     Dosage: 3 POSOLOGIC UNITS
     Route: 048
     Dates: start: 20050425, end: 20100425
  2. DELORAZEPAM [Concomitant]
     Indication: DEPRESSION
     Dosage: 90 DROPS
     Route: 048
  3. CANNABIS [Concomitant]

REACTIONS (4)
  - ALANINE AMINOTRANSFERASE INCREASED [None]
  - BLOOD CREATINE PHOSPHOKINASE INCREASED [None]
  - DEPRESSED LEVEL OF CONSCIOUSNESS [None]
  - HYPONATRAEMIA [None]
